FAERS Safety Report 8511789-4 (Version None)
Quarter: 2012Q3

REPORT INFORMATION
  Report Type: 
  Country: None (occurrence: None)
  Receive Date: 20120716
  Receipt Date: 20120711
  Transmission Date: 20120928
  Serious: Yes (Other)
  Sender: FDA-Public Use
  Company Number: PHHY2011BR48045

PATIENT
  Sex: Female

DRUGS (4)
  1. CORTISONE ACETATE [Concomitant]
     Dosage: UNK UKN, UNK
  2. DIOVAN [Suspect]
     Dosage: 160 MG, UNK
  3. DIOVAN [Interacting]
     Dosage: 320 MG, UNK
     Route: 048
  4. LOTAR [Concomitant]
     Dosage: UNK UKN, UNK

REACTIONS (6)
  - ASTHMA [None]
  - DRUG INEFFECTIVE [None]
  - HYPERTENSION [None]
  - BRONCHITIS [None]
  - NECK PAIN [None]
  - HEADACHE [None]
